FAERS Safety Report 4699565-4 (Version None)
Quarter: 2005Q2

REPORT INFORMATION
  Report Type: 
  Country: None (occurrence: None)
  Receive Date: 20050622
  Receipt Date: 20050613
  Transmission Date: 20051028
  Serious: Yes (Hospitalization)
  Sender: FDA-Public Use
  Company Number: FRWYE736213JUN05

PATIENT
  Age: 70 Year
  Sex: Male

DRUGS (1)
  1. TAZOCILLINE (PIPERACILLIN/TAZOBACTAM, INJECTION) [Suspect]
     Dates: start: 20050418, end: 20050424

REACTIONS (2)
  - CONDITION AGGRAVATED [None]
  - HEPATITIS CHOLESTATIC [None]
